FAERS Safety Report 20394319 (Version 1)
Quarter: 2022Q1

REPORT INFORMATION
  Report Type: Spontaneous
  Country: NL (occurrence: NL)
  Receive Date: 20220129
  Receipt Date: 20220129
  Transmission Date: 20220424
  Serious: Yes (Other)
  Sender: FDA-Public Use
  Company Number: None

PATIENT
  Age: 51 Year
  Sex: Male
  Weight: 122 kg

DRUGS (6)
  1. SERTRALINE [Suspect]
     Active Substance: SERTRALINE HYDROCHLORIDE
     Indication: Post-traumatic stress disorder
     Dosage: 2D 1T
     Dates: start: 201408
  2. QUETIAPINE [Concomitant]
     Active Substance: QUETIAPINE
     Dosage: FILM-COATED TABLET, 25 MG (MILLIGRAMS)
  3. OXAZEPAM [Concomitant]
     Active Substance: OXAZEPAM
     Dosage: TABLET, 10 MG (MILLIGRAM)
  4. PRAMIPEXOLE [Concomitant]
     Active Substance: PRAMIPEXOLE
     Dosage: 0,088MG  (0,088MG BASE)
  5. SIMVASTATIN [Concomitant]
     Active Substance: SIMVASTATIN
     Dosage: FILM-COATED TABLET, 40 MG (MILLIGRAMS)
  6. LEVETIRACETAM [Concomitant]
     Active Substance: LEVETIRACETAM
     Dosage: FILM-COATED TABLET, 500 MG (MILLIGRAMS)

REACTIONS (2)
  - Hallucination, tactile [Not Recovered/Not Resolved]
  - Hallucination, visual [Not Recovered/Not Resolved]

NARRATIVE: CASE EVENT DATE: 20211227
